FAERS Safety Report 6075404-4 (Version None)
Quarter: 2009Q1

REPORT INFORMATION
  Report Type: 
  Country: None (occurrence: None)
  Receive Date: 20090209
  Receipt Date: 20090127
  Transmission Date: 20090719
  Serious: Yes (Other)
  Sender: FDA-Public Use
  Company Number: ALL1-2009-00205

PATIENT
  Age: 15 Year
  Sex: Male
  Weight: 49.9 kg

DRUGS (2)
  1. DAYTRANA [Suspect]
     Indication: ATTENTION DEFICIT/HYPERACTIVITY DISORDER
     Dosage: 20 MG, 1X/DAY:QD, ORAL
     Route: 048
     Dates: start: 20070801
  2. EYE DROPS [Concomitant]

REACTIONS (4)
  - ANTERIOR CHAMBER CLEAVAGE SYNDROME [None]
  - CONDITION AGGRAVATED [None]
  - OFF LABEL USE [None]
  - SOMNOLENCE [None]
